FAERS Safety Report 14656705 (Version 4)
Quarter: 2018Q2

REPORT INFORMATION
  Report Type: Spontaneous
  Country: CA (occurrence: CA)
  Receive Date: 20180319
  Receipt Date: 20180419
  Transmission Date: 20180711
  Serious: Yes (Disabling, Other)
  Sender: FDA-Public Use
  Company Number: CA-TERSERA THERAPEUTICS, LLC-2044092

PATIENT
  Age: 76 Year
  Sex: Male

DRUGS (1)
  1. ZOLADEX [Suspect]
     Active Substance: GOSERELIN ACETATE
     Indication: PROSTATE CANCER
     Route: 058
     Dates: start: 201708

REACTIONS (21)
  - Cardiac disorder [Unknown]
  - Adverse drug reaction [Unknown]
  - Rash erythematous [Unknown]
  - Oedema peripheral [Unknown]
  - Fear [Unknown]
  - Pain [Unknown]
  - Dry mouth [Unknown]
  - Depression [Unknown]
  - Urticaria [Unknown]
  - Drug hypersensitivity [Unknown]
  - Weight increased [Unknown]
  - Skin lesion [Unknown]
  - Skin burning sensation [Unknown]
  - Rash [Unknown]
  - Impaired driving ability [Unknown]
  - Blood glucose increased [Unknown]
  - Insomnia [Unknown]
  - Hypertension [Unknown]
  - Vascular injury [Unknown]
  - Anxiety [Unknown]
  - Pain of skin [Unknown]

NARRATIVE: CASE EVENT DATE: 2017
